FAERS Safety Report 6583847-5 (Version None)
Quarter: 2010Q1

REPORT INFORMATION
  Report Type: 
  Country: None (occurrence: None)
  Receive Date: 20100213
  Receipt Date: 20100213
  Transmission Date: 20100710
  Serious: Yes (Hospitalization)
  Sender: FDA-Public Use
  Company Number: None

PATIENT
  Age: 77 Year
  Sex: Female
  Weight: 76.2043 kg

DRUGS (1)
  1. ACTONEL [Suspect]
     Indication: OSTEOPOROSIS
     Dosage: MONTHLY PO
     Route: 048
     Dates: start: 20100123, end: 20100123

REACTIONS (6)
  - BACK PAIN [None]
  - DYSPHAGIA [None]
  - GASTROINTESTINAL ULCER [None]
  - HEADACHE [None]
  - PANCREATITIS [None]
  - WEIGHT DECREASED [None]
